FAERS Safety Report 6303654 (Version 2)
Quarter: 2025Q3

REPORT INFORMATION
  Report Type: Spontaneous
  Country: US (occurrence: US)
  Receive Date: 20070503
  Receipt Date: 20250814
  Transmission Date: 20251021
  Serious: Yes (Death)
  Sender: MERCK SHARP & DOHME LLC
  Company Number: None

PATIENT
  Age: 57 Year

DRUGS (2)
  1. CANCIDAS [Suspect]
     Active Substance: CASPOFUNGIN ACETATE
     Indication: Candida infection
  2. FLUCONAZOLE [Concomitant]
     Active Substance: FLUCONAZOLE
     Indication: Candida infection

REACTIONS (2)
  - Death [Fatal]
  - Therapy non-responder [Unknown]
